FAERS Safety Report 5592647-4 (Version None)
Quarter: 2008Q1

REPORT INFORMATION
  Report Type: 
  Country: None (occurrence: None)
  Receive Date: 20080115
  Receipt Date: 20080108
  Transmission Date: 20080703
  Serious: Yes (Hospitalization, Disabling)
  Sender: FDA-Public Use
  Company Number: US-BOEHRINGER INGELHEIM PHARMACEUTICALS, INC.-2007-BP-26214BP

PATIENT
  Age: 77 Year
  Sex: Male

DRUGS (5)
  1. FLOMAX [Suspect]
     Indication: BLADDER DISORDER
     Route: 048
     Dates: start: 20060101
  2. FLOMAX [Suspect]
     Indication: URINARY RETENTION
  3. SINGULAIR [Concomitant]
     Indication: ASTHMA
  4. ADVAIR DISKUS 100/50 [Concomitant]
     Indication: ASTHMA
  5. KEPPRA [Concomitant]

REACTIONS (7)
  - CATARACT [None]
  - CONCUSSION [None]
  - CONVULSION [None]
  - FLOPPY IRIS SYNDROME [None]
  - LENS DISORDER [None]
  - ROAD TRAFFIC ACCIDENT [None]
  - VISUAL DISTURBANCE [None]
